FAERS Safety Report 12923794 (Version 2)
Quarter: 2019Q2

REPORT INFORMATION
  Report Type: Report from Study
  Country: IT (occurrence: IT)
  Receive Date: 20161109
  Receipt Date: 20190614
  Transmission Date: 20190711
  Serious: Yes (Death, Other)
  Sender: FDA-Public Use
  Company Number: IT-JAZZ-2016-IT-021955

PATIENT
  Age: 59 Year
  Sex: Male
  Weight: 88 kg

DRUGS (9)
  1. DEFITELIO [Suspect]
     Active Substance: DEFIBROTIDE SODIUM
     Indication: VENOOCCLUSIVE DISEASE
     Dosage: 25 MG/KG, QD
     Dates: start: 20160218, end: 20160307
  2. FOSCAVIR [Concomitant]
     Active Substance: FOSCARNET SODIUM
     Indication: PNEUMONIA
     Dosage: 9 G, QD
     Route: 042
     Dates: start: 20160315, end: 20160323
  3. ANFOTERICINA B LIPOSOMAL [Concomitant]
     Indication: PNEUMONIA
     Dosage: 50 MG, QD
     Route: 042
     Dates: start: 20160315, end: 20160323
  4. CYCLOSPORINE. [Concomitant]
     Active Substance: CYCLOSPORINE
     Indication: TRANSPLANT
  5. CASPOFUNGIN [Concomitant]
     Active Substance: CASPOFUNGIN
     Indication: PNEUMONIA
     Dosage: 50 MG, QD
     Route: 042
     Dates: start: 20160315, end: 20160323
  6. FOSCAVIR [Concomitant]
     Active Substance: FOSCARNET SODIUM
     Indication: CYTOMEGALOVIRUS INFECTION
  7. FILGRASTIM [Concomitant]
     Active Substance: FILGRASTIM
     Indication: TRANSPLANT
  8. PIPERACILLIN TAZOBACTAM PA [Concomitant]
     Active Substance: PIPERACILLIN SODIUM\TAZOBACTAM SODIUM
     Indication: PNEUMONIA
     Dosage: 18 G, QD
     Route: 042
     Dates: start: 20160315, end: 20160323
  9. PANTOPRAZOLE [Concomitant]
     Active Substance: PANTOPRAZOLE
     Indication: TRANSPLANT
     Dosage: 40 MG, UNK
     Route: 042

REACTIONS (2)
  - Pneumonia [Fatal]
  - Acute respiratory distress syndrome [Fatal]

NARRATIVE: CASE EVENT DATE: 20160315
